FAERS Safety Report 21682513 (Version 3)
Quarter: 2023Q1

REPORT INFORMATION
  Report Type: Spontaneous
  Country: US (occurrence: US)
  Receive Date: 20221205
  Receipt Date: 20230201
  Transmission Date: 20230418
  Serious: Yes (Other)
  Sender: FDA-Public Use
  Company Number: US-PFIZER INC-PV202200116134

PATIENT
  Age: 72 Year
  Sex: Female

DRUGS (1)
  1. IBRANCE [Suspect]
     Active Substance: PALBOCICLIB
     Dosage: UNK
     Dates: end: 20230122

REACTIONS (6)
  - Renal impairment [Unknown]
  - Alopecia [Unknown]
  - Stomatitis [Unknown]
  - Diarrhoea [Unknown]
  - Rash [Unknown]
  - White blood cell count decreased [Unknown]
